FAERS Safety Report 21132562 (Version 2)
Quarter: 2022Q3

REPORT INFORMATION
  Report Type: Report from Study
  Country: PA (occurrence: PA)
  Receive Date: 20220726
  Receipt Date: 20220808
  Transmission Date: 20221026
  Serious: Yes (Other)
  Sender: FDA-Public Use
  Company Number: PA-NOVARTISPH-NVSC2022PA166272

PATIENT
  Age: 78 Year
  Sex: Female

DRUGS (2)
  1. KISQALI [Suspect]
     Active Substance: RIBOCICLIB
     Indication: Breast cancer metastatic
     Dosage: 600 MG, QD
     Route: 048
     Dates: start: 202012
  2. KISQALI [Suspect]
     Active Substance: RIBOCICLIB
     Dosage: UNK
     Route: 065

REACTIONS (9)
  - Erysipelas [Unknown]
  - Skin infection [Recovering/Resolving]
  - Reaction to excipient [Recovering/Resolving]
  - Feeling abnormal [Unknown]
  - Insomnia [Recovered/Resolved]
  - Pruritus [Recovering/Resolving]
  - Macule [Recovering/Resolving]
  - Erythema [Recovered/Resolved]
  - Product dose omission issue [Recovering/Resolving]

NARRATIVE: CASE EVENT DATE: 20220625
